FAERS Safety Report 5385719-0 (Version None)
Quarter: 2007Q3

REPORT INFORMATION
  Report Type: 
  Country: None (occurrence: None)
  Receive Date: 20070712
  Receipt Date: 20070630
  Transmission Date: 20080115
  Serious: Yes (Other)
  Sender: FDA-Public Use
  Company Number: US-PFIZER INC-2007041001

PATIENT
  Sex: Female
  Weight: 61.363 kg

DRUGS (18)
  1. CHANTIX [Suspect]
     Indication: SMOKING CESSATION THERAPY
  2. CIPROFLOXACIN [Suspect]
  3. LISINOPRIL [Suspect]
  4. METHYLPREDNISOLONE [Suspect]
  5. MORPHINE [Suspect]
  6. TOPROL-XL [Concomitant]
  7. NORVASC [Concomitant]
  8. VALSARTAN [Concomitant]
  9. NEXIUM [Concomitant]
  10. SPIRONOLACTONE [Concomitant]
  11. HYDROCODONE BITARTRATE + ACETAMINOPHEN [Concomitant]
  12. TIZANIDINE HCL [Concomitant]
  13. DIAZEPAM [Concomitant]
  14. CLARITIN-D [Concomitant]
  15. RELPAX [Concomitant]
  16. FLAVOXATE HYDROCHLORIDE COATED TAB [Concomitant]
  17. AMITRIPTYLINE HCL [Concomitant]
  18. IMITREX [Concomitant]

REACTIONS (12)
  - ABDOMINAL DISTENSION [None]
  - ABDOMINAL PAIN UPPER [None]
  - BLOOD PRESSURE INCREASED [None]
  - DIARRHOEA [None]
  - DRUG HYPERSENSITIVITY [None]
  - DYSGEUSIA [None]
  - EMOTIONAL DISORDER [None]
  - FEELING HOT [None]
  - HEADACHE [None]
  - MULTIPLE ALLERGIES [None]
  - NERVOUSNESS [None]
  - WEIGHT INCREASED [None]
